FAERS Safety Report 6640811-5 (Version None)
Quarter: 2010Q1

REPORT INFORMATION
  Report Type: 
  Country: None (occurrence: None)
  Receive Date: 20100318
  Receipt Date: 20100308
  Transmission Date: 20100710
  Serious: Yes (Other)
  Sender: FDA-Public Use
  Company Number: US-PURDUE-USA-2010-0042629

PATIENT
  Sex: Male

DRUGS (2)
  1. OXYCONTIN [Suspect]
     Indication: BACK PAIN
     Dosage: 400 MG, DAILY
  2. OXYCONTIN [Suspect]
     Indication: ARTHRALGIA

REACTIONS (14)
  - CONFUSIONAL STATE [None]
  - DISTURBANCE IN ATTENTION [None]
  - DYSKINESIA [None]
  - GENERAL PHYSICAL HEALTH DETERIORATION [None]
  - LIBIDO DECREASED [None]
  - MEMORY IMPAIRMENT [None]
  - MENTAL IMPAIRMENT [None]
  - MUSCLE TWITCHING [None]
  - NERVOUSNESS [None]
  - SUICIDAL IDEATION [None]
  - TOOTH DISORDER [None]
  - TOOTH LOSS [None]
  - UNEVALUABLE EVENT [None]
  - VISION BLURRED [None]
